FAERS Safety Report 5733117-X (Version None)
Quarter: 2008Q2

REPORT INFORMATION
  Report Type: 
  Country: None (occurrence: None)
  Receive Date: 20080509
  Receipt Date: 20080430
  Transmission Date: 20081010
  Serious: Yes (Death, Hospitalization, Other)
  Sender: FDA-Public Use
  Company Number: US-ROCHE-561778

PATIENT
  Age: 79 Year
  Sex: Female

DRUGS (3)
  1. BONIVA [Suspect]
     Indication: OSTEOPOROSIS
     Route: 048
     Dates: start: 20070101
  2. GLUCOTROL [Suspect]
     Route: 048
  3. ANTIHYPERTENSIVE NOS [Suspect]
     Indication: PORTAL HYPERTENSION
     Route: 065

REACTIONS (13)
  - ABNORMAL BEHAVIOUR [None]
  - ARTERIOSCLEROSIS [None]
  - ASTHENIA [None]
  - BLOOD GLUCOSE DECREASED [None]
  - CARDIO-RESPIRATORY ARREST [None]
  - FALL [None]
  - FEEDING DISORDER [None]
  - HEPATIC CIRRHOSIS [None]
  - HYPOTENSION [None]
  - PAIN [None]
  - READING DISORDER [None]
  - RESTLESSNESS [None]
  - RIB FRACTURE [None]
